FAERS Safety Report 17965198 (Version 1)
Quarter: 2020Q3

REPORT INFORMATION
  Report Type: Spontaneous
  Country: US (occurrence: US)
  Receive Date: 20200701
  Receipt Date: 20200701
  Transmission Date: 20201103
  Serious: No
  Sender: FDA-Public Use
  Company Number: US-ELI_LILLY_AND_COMPANY-US202006010709

PATIENT
  Sex: Female

DRUGS (1)
  1. VERZENIO [Suspect]
     Active Substance: ABEMACICLIB
     Indication: BREAST CANCER METASTATIC
     Dosage: UNK, UNKNOWN
     Route: 065
     Dates: start: 201803

REACTIONS (9)
  - Nail bed disorder [Unknown]
  - Arthralgia [Not Recovered/Not Resolved]
  - Onychoclasis [Unknown]
  - Diarrhoea [Recovering/Resolving]
  - Decreased appetite [Not Recovered/Not Resolved]
  - Alopecia [Recovered/Resolved]
  - Hair texture abnormal [Not Recovered/Not Resolved]
  - Onychomadesis [Unknown]
  - Nail growth abnormal [Unknown]
